FAERS Safety Report 5218680-X (Version None)
Quarter: 2007Q1

REPORT INFORMATION
  Report Type: 
  Country: None (occurrence: None)
  Receive Date: 20070122
  Receipt Date: 20070115
  Transmission Date: 20070707
  Serious: Yes (Other)
  Sender: FDA-Public Use
  Company Number: HQWYE103309AUG04

PATIENT
  Age: 41 Year
  Sex: Female
  Weight: 62.65 kg

DRUGS (2)
  1. PREMARIN [Suspect]
     Indication: MENOPAUSE
  2. PROVERA [Suspect]

REACTIONS (13)
  - BREAST CANCER METASTATIC [None]
  - BREAST CANCER RECURRENT [None]
  - KLEBSIELLA SEPSIS [None]
  - LEUKOCYTOSIS [None]
  - METASTASES TO BONE [None]
  - METASTASES TO SPINE [None]
  - NAUSEA [None]
  - NEUTROPENIC COLITIS [None]
  - OESTROGEN RECEPTOR ASSAY POSITIVE [None]
  - PLEURAL EFFUSION [None]
  - PROGESTERONE RECEPTOR ASSAY POSITIVE [None]
  - PYREXIA [None]
  - VOMITING [None]
